FAERS Safety Report 12596999 (Version 2)
Quarter: 2016Q3

REPORT INFORMATION
  Report Type: Spontaneous
  Country: US (occurrence: US)
  Receive Date: 20160727
  Receipt Date: 20160902
  Transmission Date: 20161109
  Serious: No
  Sender: FDA-Public Use
  Company Number: US-ASTRAZENECA-2016SE78464

PATIENT
  Age: 679 Month
  Sex: Male
  Weight: 102.1 kg

DRUGS (1)
  1. BYETTA [Suspect]
     Active Substance: EXENATIDE
     Route: 058
     Dates: start: 20160307

REACTIONS (2)
  - Feeling abnormal [Unknown]
  - Device defective [Unknown]

NARRATIVE: CASE EVENT DATE: 201607
